FAERS Safety Report 7961946-0 (Version None)
Quarter: 2011Q4

REPORT INFORMATION
  Report Type: 
  Country: None (occurrence: None)
  Receive Date: 20111207
  Receipt Date: 20111130
  Transmission Date: 20120403
  Serious: Yes (Hospitalization)
  Sender: FDA-Public Use
  Company Number: CA-BAXTER-2011BH027903

PATIENT
  Age: 4 Month
  Sex: Female
  Weight: 6 kg

DRUGS (8)
  1. CEFTRIAXONE [Concomitant]
     Indication: PRODUCT USED FOR UNKNOWN INDICATION
     Route: 065
  2. GAMUNEX [Suspect]
     Indication: KAWASAKI'S DISEASE
     Route: 042
     Dates: start: 20110724, end: 20110724
  3. GAMMAGARD LIQUID [Suspect]
     Route: 042
     Dates: start: 20110727, end: 20110727
  4. IGIVNEX [Suspect]
     Indication: KAWASAKI'S DISEASE
     Route: 042
     Dates: start: 20110724, end: 20110724
  5. POTASSIUM CHLORIDE [Concomitant]
     Indication: PRODUCT USED FOR UNKNOWN INDICATION
     Route: 065
  6. GAMMAGARD LIQUID [Suspect]
     Indication: KAWASAKI'S DISEASE
     Route: 042
     Dates: start: 20110727, end: 20110727
  7. ACETAMINOPHEN [Concomitant]
     Indication: PRODUCT USED FOR UNKNOWN INDICATION
     Route: 065
  8. ASPIRIN [Concomitant]
     Indication: PRODUCT USED FOR UNKNOWN INDICATION
     Route: 065

REACTIONS (2)
  - ANTI-ERYTHROCYTE ANTIBODY POSITIVE [None]
  - HAEMOLYTIC ANAEMIA [None]
